FAERS Safety Report 5224915-X (Version None)
Quarter: 2007Q1

REPORT INFORMATION
  Report Type: 
  Country: None (occurrence: None)
  Receive Date: 20070126
  Receipt Date: 20070111
  Transmission Date: 20070707
  Serious: Yes (Hospitalization)
  Sender: FDA-Public Use
  Company Number: GXKR2007NO00708

PATIENT
  Age: 75 Year
  Sex: Female

DRUGS (8)
  1. METFORMIN HCL [Suspect]
     Indication: DIABETES MELLITUS NON-INSULIN-DEPENDENT
     Dosage: 2 G
  2. ENALAPRIL MALEATE [Suspect]
     Indication: HYPERTENSION
     Dosage: 20 MG
  3. GLIPIZIDE [Concomitant]
  4. WARFARIN SODIUM [Concomitant]
  5. DIURETICS (NO INGREDIENTS/SUBSTANCES) [Concomitant]
  6. THYROXIN (LEVOTHYROXIN SODIUM) [Concomitant]
  7. OLANZAPINE [Concomitant]
  8. ATORVASTATIN CALCIUM [Concomitant]

REACTIONS (11)
  - AGITATION [None]
  - BLOOD PRESSURE DECREASED [None]
  - CARDIOPULMONARY FAILURE [None]
  - DECREASED APPETITE [None]
  - DISORIENTATION [None]
  - HYPERVENTILATION [None]
  - HYPOTHERMIA [None]
  - LACTIC ACIDOSIS [None]
  - LETHARGY [None]
  - RENAL FAILURE [None]
  - SOMNOLENCE [None]
